FAERS Safety Report 5602026-9 (Version None)
Quarter: 2008Q1

REPORT INFORMATION
  Report Type: 
  Country: None (occurrence: None)
  Receive Date: 20080122
  Receipt Date: 20080122
  Transmission Date: 20080703
  Serious: Yes (Life-Threatening, Hospitalization)
  Sender: FDA-Public Use
  Company Number: None

PATIENT
  Age: 39 Year
  Sex: Female
  Weight: 60 kg

DRUGS (1)
  1. PROPOFOL [Suspect]
     Indication: FRACTURE REDUCTION
     Dosage: 250MG -3.9MG/KG/DOSE- GIVEN IN INCREMENT IV
     Route: 042
     Dates: start: 20071128, end: 20071128

REACTIONS (6)
  - ALTERED STATE OF CONSCIOUSNESS [None]
  - ANOXIC ENCEPHALOPATHY [None]
  - EMBOLISM [None]
  - GLASGOW COMA SCALE ABNORMAL [None]
  - OXYGEN SATURATION DECREASED [None]
  - POST PROCEDURAL COMPLICATION [None]
